FAERS Safety Report 5229644-4 (Version None)
Quarter: 2007Q1

REPORT INFORMATION
  Report Type: 
  Country: None (occurrence: None)
  Receive Date: 20070206
  Receipt Date: 20070125
  Transmission Date: 20070707
  Serious: Yes (Hospitalization)
  Sender: FDA-Public Use
  Company Number: FI-JNJFOC-20070106541

PATIENT
  Sex: Female

DRUGS (4)
  1. REMICADE [Suspect]
     Indication: SPONDYLITIS
     Dosage: DOSE 200-400MG, 7 INFUSION, TOTAL 1900MG
     Route: 042
  2. METHOTREXATE [Concomitant]
     Indication: SPONDYLITIS
     Route: 048
  3. SULFASALAZINE [Concomitant]
     Indication: SPONDYLITIS
     Route: 048
  4. KALCIPOS-D. [Concomitant]
     Indication: SPONDYLITIS
     Route: 048

REACTIONS (2)
  - MALIGNANT MELANOMA [None]
  - SUPERFICIAL SPREADING MELANOMA STAGE UNSPECIFIED [None]
